FAERS Safety Report 16002616 (Version 6)
Quarter: 2023Q2

REPORT INFORMATION
  Report Type: Spontaneous
  Country: US (occurrence: US)
  Receive Date: 20190225
  Receipt Date: 20230515
  Transmission Date: 20230722
  Serious: Yes (Hospitalization)
  Sender: FDA-Public Use
  Company Number: US-SA-2019SA044991

PATIENT
  Age: 59 Year
  Sex: Female
  Weight: 127.27 kg

DRUGS (32)
  1. DUPIXENT [Suspect]
     Active Substance: DUPILUMAB
     Indication: Dermatitis atopic
     Dosage: 600 MG, 1X
     Route: 058
     Dates: start: 20190130, end: 20190130
  2. DUPIXENT [Suspect]
     Active Substance: DUPILUMAB
     Indication: Asthma
     Dosage: 300 MG, QOW
     Route: 058
     Dates: start: 201902
  3. ASPIRIN [Concomitant]
     Active Substance: ASPIRIN
  4. CALCIUM CARBONATE [Concomitant]
     Active Substance: CALCIUM CARBONATE
  5. COLACE [Concomitant]
     Active Substance: DOCUSATE SODIUM
  6. VITAMIN D3 [Concomitant]
     Active Substance: CHOLECALCIFEROL
  7. HYDROCHLOROTHIAZIDE [Concomitant]
     Active Substance: HYDROCHLOROTHIAZIDE
  8. PREDNISONE [Concomitant]
     Active Substance: PREDNISONE
  9. FUROSEMIDE [Concomitant]
     Active Substance: FUROSEMIDE
  10. LOSARTAN POTASSIUM [Concomitant]
     Active Substance: LOSARTAN POTASSIUM
  11. SPIRIVA [Concomitant]
     Active Substance: TIOTROPIUM BROMIDE MONOHYDRATE
  12. HUMALOG [Concomitant]
     Active Substance: INSULIN LISPRO
  13. GUAIATUSSIN AC [Concomitant]
     Active Substance: CODEINE PHOSPHATE\GUAIFENESIN
  14. QVAR [Concomitant]
     Active Substance: BECLOMETHASONE DIPROPIONATE
  15. DULERA [Concomitant]
     Active Substance: FORMOTEROL FUMARATE DIHYDRATE\MOMETASONE FUROATE
  16. TOUJEO [Concomitant]
     Active Substance: INSULIN GLARGINE
  17. SERTRALINE [Concomitant]
     Active Substance: SERTRALINE HYDROCHLORIDE
  18. AMLODIPINE BESYLATE [Concomitant]
     Active Substance: AMLODIPINE BESYLATE
  19. POTASSIUM CHLORIDE [Concomitant]
     Active Substance: POTASSIUM CHLORIDE
  20. DYMISTA [Concomitant]
     Active Substance: AZELASTINE HYDROCHLORIDE\FLUTICASONE PROPIONATE
  21. ZILEUTON [Concomitant]
     Active Substance: ZILEUTON
  22. OXYCODONE [Concomitant]
     Active Substance: OXYCODONE
  23. CYCLOBENZAPRINE [Concomitant]
     Active Substance: CYCLOBENZAPRINE
  24. ASCORBIC ACID\IRON [Concomitant]
     Active Substance: ASCORBIC ACID\IRON
  25. FEXOFENADINE [Concomitant]
     Active Substance: FEXOFENADINE HYDROCHLORIDE
  26. PANTOPRAZOLE SODIUM [Concomitant]
     Active Substance: PANTOPRAZOLE SODIUM
  27. EPINEPHRINE [Concomitant]
     Active Substance: EPINEPHRINE
  28. RANITIDINE [Concomitant]
     Active Substance: RANITIDINE
  29. CARBAMAZEPINE [Concomitant]
     Active Substance: CARBAMAZEPINE
  30. BACLOFEN [Concomitant]
     Active Substance: BACLOFEN
  31. AZITHROMYCIN [Concomitant]
     Active Substance: AZITHROMYCIN
  32. CEFADROXIL [Concomitant]
     Active Substance: CEFADROXIL

REACTIONS (8)
  - Asthma [Unknown]
  - Scratch [Unknown]
  - Pruritus [Unknown]
  - Injection site pain [Unknown]
  - Dermatitis atopic [Unknown]
  - Pruritus [Unknown]
  - Skin swelling [Unknown]
  - Dry skin [Unknown]

NARRATIVE: CASE EVENT DATE: 20190130
